FAERS Safety Report 24927838 (Version 1)
Quarter: 2025Q1

REPORT INFORMATION
  Report Type: Spontaneous
  Country: US (occurrence: US)
  Receive Date: 20250205
  Receipt Date: 20250205
  Transmission Date: 20250409
  Serious: No
  Sender: JOHNSON AND JOHNSON
  Company Number: US-JNJFOC-20250166087

PATIENT
  Age: 22 Year
  Sex: Male

DRUGS (1)
  1. DARZALEX [Suspect]
     Active Substance: DARATUMUMAB
     Indication: Leukaemia
     Dates: start: 20250113

REACTIONS (3)
  - Product preparation error [Unknown]
  - Product administration error [Unknown]
  - Off label use [Unknown]

NARRATIVE: CASE EVENT DATE: 20250120
